FAERS Safety Report 10599648 (Version 2)
Quarter: 2014Q4

REPORT INFORMATION
  Report Type: Spontaneous
  Country: CH (occurrence: CH)
  Receive Date: 20141121
  Receipt Date: 20141202
  Transmission Date: 20150529
  Serious: Yes (Other)
  Sender: FDA-Public Use
  Company Number: CH-ROXANE LABORATORIES, INC.-2014-BI-55685GD

PATIENT
  Age: 64 Year
  Sex: Female

DRUGS (5)
  1. LISINOPRIL. [Concomitant]
     Active Substance: LISINOPRIL
     Indication: HYPERTENSION
     Dosage: 20 MG
     Route: 065
  2. PREDNISONE. [Suspect]
     Active Substance: PREDNISONE
     Indication: TEMPORAL ARTERITIS
     Dosage: 20 MG
     Route: 065
  3. PREDNISONE. [Suspect]
     Active Substance: PREDNISONE
     Dosage: 60 MG
     Route: 065
  4. PANTOPRAZOLE [Concomitant]
     Active Substance: PANTOPRAZOLE SODIUM
     Indication: GASTRITIS
     Dosage: 20 MG
     Route: 065
  5. CALCIMAGON D3 FORTE [Concomitant]
     Indication: OSTEOPOROSIS PROPHYLAXIS
     Route: 065

REACTIONS (9)
  - Femoral neck fracture [Unknown]
  - Skin atrophy [Unknown]
  - Fall [Unknown]
  - Gastritis [Unknown]
  - Diabetes mellitus [Unknown]
  - Osteoporosis [Unknown]
  - Hypertension [Unknown]
  - Cushingoid [Unknown]
  - Insomnia [Unknown]
